FAERS Safety Report 7357016-5 (Version None)
Quarter: 2011Q1

REPORT INFORMATION
  Report Type: 
  Country: None (occurrence: None)
  Receive Date: 20110310
  Receipt Date: 20110310
  Transmission Date: 20110831
  Serious: Yes (Death)
  Sender: FDA-Public Use
  Company Number: None

PATIENT
  Sex: Female
  Weight: 56.3 kg

DRUGS (26)
  1. CREON [Concomitant]
  2. MULTI-VITAMIN [Concomitant]
  3. OXYCONTIN [Concomitant]
  4. REGLAN [Concomitant]
  5. CARAFATE [Concomitant]
  6. CREON [Concomitant]
  7. OXYCODONE HCL [Concomitant]
  8. ASPIRIN [Concomitant]
  9. COLACE [Concomitant]
  10. FISH OIL [Concomitant]
  11. CRESTOR [Concomitant]
  12. PAXIL [Concomitant]
  13. CARAFATE [Concomitant]
  14. NEXIUM [Concomitant]
  15. ZOFRAN [Concomitant]
  16. ZYRTEC [Concomitant]
  17. ZOFRAN [Concomitant]
  18. OXYCODONE HCL [Concomitant]
  19. LOPRESSOR [Concomitant]
  20. SORAFENIB 400 MG [Suspect]
     Indication: PANCREATIC CARCINOMA
     Dosage: 400 MG DAILY ORAL
     Route: 048
     Dates: start: 20101217, end: 20110206
  21. OXYCONDONE [Concomitant]
  22. VITAMIN D [Concomitant]
  23. LAMIR [Concomitant]
  24. ERLOTINIB 100 MG [Suspect]
     Indication: PANCREATIC CARCINOMA
     Dosage: 100 MG DAILY ORAL
     Route: 048
     Dates: start: 20101217, end: 20110206
  25. PREVACID [Concomitant]
  26. MIRTAZAPINE [Concomitant]

REACTIONS (1)
  - NEOPLASM MALIGNANT [None]
